FAERS Safety Report 8950633 (Version 1)
Quarter: 2012Q4

REPORT INFORMATION
  Report Type: 
  Country: IT (occurrence: IT)
  Receive Date: 20121207
  Receipt Date: 20121207
  Transmission Date: 20130627
  Serious: Yes (Hospitalization)
  Sender: FDA-Public Use
  Company Number: IT-NOVOPROD-362742

PATIENT
  Age: 53 Year
  Sex: Male

DRUGS (6)
  1. NOVORAPID [Suspect]
     Indication: DIABETES MELLITUS
     Dosage: 38 U, qd
     Route: 058
     Dates: start: 20070930
  2. LANTUS [Suspect]
     Indication: DIABETES MELLITUS
     Dosage: 22 U, qd
     Route: 058
     Dates: start: 20070930
  3. METOPROLOLO [Concomitant]
     Dosage: 100 mg, qd
     Route: 048
  4. RAMIPRIL [Concomitant]
     Dosage: 5 mg, qd
     Route: 048
  5. CARDIOASPIRIN [Concomitant]
     Dosage: 1 Tab, qd
     Route: 048
  6. NITRODERM [Concomitant]

REACTIONS (1)
  - Hypoglycaemic coma [Recovered/Resolved]
